FAERS Safety Report 14842239 (Version 4)
Quarter: 2018Q4

REPORT INFORMATION
  Report Type: Report from Study
  Country: DE (occurrence: DE)
  Receive Date: 20180503
  Receipt Date: 20181228
  Transmission Date: 20190204
  Serious: Yes (Hospitalization)
  Sender: FDA-Public Use
  Company Number: DE-MYLANLABS-2018M1027453

PATIENT
  Age: 65 Year
  Sex: Female

DRUGS (5)
  1. METHOTREXATE. [Suspect]
     Active Substance: METHOTREXATE
     Dosage: 10 MILLIGRAM, QW(INJECTED ONCE PER WEEK)
  2. TOCILIZUMAB. [Suspect]
     Active Substance: TOCILIZUMAB
     Indication: RHEUMATOID ARTHRITIS
     Dosage: 162 MG, QW
     Route: 058
     Dates: start: 20150821
  3. METHOTREXATE. [Suspect]
     Active Substance: METHOTREXATE
     Indication: RHEUMATOID ARTHRITIS
     Dosage: 1 DF, QW, INJECTED ONCE PER WEEK
     Route: 065
  4. LODOTRA [Concomitant]
     Active Substance: PREDNISONE
     Indication: RHEUMATOID ARTHRITIS
     Dosage: 2 MG, QD IN THE EVENING
     Route: 048
  5. NOVAMINSULFON [Concomitant]
     Active Substance: METAMIZOLE
     Indication: PRODUCT USED FOR UNKNOWN INDICATION
     Dosage: AS REQUIRED
     Route: 065

REACTIONS (6)
  - Drug effect decreased [Recovering/Resolving]
  - Aphthous ulcer [Not Recovered/Not Resolved]
  - Chapped lips [Recovered/Resolved]
  - Impaired healing [Recovered/Resolved]
  - Lip disorder [Not Recovered/Not Resolved]
  - Mucous membrane disorder [Recovered/Resolved]

NARRATIVE: CASE EVENT DATE: 20150821
